FAERS Safety Report 7091190-3 (Version None)
Quarter: 2010Q4

REPORT INFORMATION
  Report Type: 
  Country: None (occurrence: None)
  Receive Date: 20101109
  Receipt Date: 20101025
  Transmission Date: 20110411
  Serious: Yes (Hospitalization)
  Sender: FDA-Public Use
  Company Number: IL-US-EMD SERONO, INC.-7024504

PATIENT
  Age: 62 Year
  Sex: Female

DRUGS (6)
  1. REBIF [Suspect]
     Indication: MULTIPLE SCLEROSIS
     Route: 058
     Dates: start: 19990101
  2. ENALADEX [Concomitant]
  3. CLONEX [Concomitant]
  4. NOCTURNO [Concomitant]
  5. PROBIOTICS [Concomitant]
  6. OMEPRAZOLE [Concomitant]

REACTIONS (13)
  - ABDOMINAL PAIN [None]
  - ASPARTATE AMINOTRANSFERASE ABNORMAL [None]
  - BLOOD BILIRUBIN INCREASED [None]
  - DECREASED APPETITE [None]
  - DIARRHOEA [None]
  - GAMMA-GLUTAMYLTRANSFERASE ABNORMAL [None]
  - HAEMOGLOBIN ABNORMAL [None]
  - LIVER DISORDER [None]
  - MENTAL DISORDER [None]
  - OEDEMA PERIPHERAL [None]
  - PALLOR [None]
  - VOMITING [None]
  - WEIGHT DECREASED [None]
